FAERS Safety Report 21707979 (Version 1)
Quarter: 2022Q4

REPORT INFORMATION
  Report Type: Spontaneous
  Country: US (occurrence: US)
  Receive Date: 20221209
  Receipt Date: 20221209
  Transmission Date: 20230113
  Serious: No
  Sender: FDA-Public Use
  Company Number: US-PFIZER INC-202201356447

PATIENT
  Age: 57 Year
  Sex: Male
  Weight: 88.45 kg

DRUGS (1)
  1. PAXLOVID [Suspect]
     Active Substance: NIRMATRELVIR\RITONAVIR
     Indication: COVID-19 treatment
     Dosage: 300MG/100MG, 2X/DAY (ONCE IN MORNING, ONCE IN EVENING)
     Dates: start: 20221205, end: 20221206

REACTIONS (14)
  - Dry mouth [Unknown]
  - Taste disorder [Unknown]
  - Dysgeusia [Unknown]
  - Dysphonia [Unknown]
  - Diarrhoea [Unknown]
  - Insomnia [Unknown]
  - Feeling abnormal [Unknown]
  - Abdominal pain [Unknown]
  - Myalgia [Unknown]
  - Nausea [Unknown]
  - Asthenia [Unknown]
  - Lethargy [Unknown]
  - Sedation [Unknown]
  - Sneezing [Unknown]

NARRATIVE: CASE EVENT DATE: 20221205
